FAERS Safety Report 11976724 (Version 3)
Quarter: 2016Q1

REPORT INFORMATION
  Report Type: Report from Study
  Country: US (occurrence: US)
  Receive Date: 20160129
  Receipt Date: 20160219
  Transmission Date: 20160526
  Serious: Yes (Hospitalization)
  Sender: FDA-Public Use
  Company Number: US-BIOGEN-2016BI00176716

PATIENT
  Age: 79 Year
  Sex: Male

DRUGS (2)
  1. FAMPRIDINE [Suspect]
     Active Substance: DALFAMPRIDINE
     Route: 065
     Dates: start: 20151129
  2. FAMPRIDINE [Suspect]
     Active Substance: DALFAMPRIDINE
     Indication: ISCHAEMIC STROKE
     Route: 065
     Dates: start: 20151104

REACTIONS (1)
  - Post procedural complication [Recovered/Resolved]

NARRATIVE: CASE EVENT DATE: 20151124
